FAERS Safety Report 10640944 (Version 2)
Quarter: 2014Q4

REPORT INFORMATION
  Report Type: Report from Study
  Country: SE (occurrence: SE)
  Receive Date: 20141209
  Receipt Date: 20141231
  Transmission Date: 20150529
  Serious: Yes (Hospitalization)
  Sender: FDA-Public Use
  Company Number: SE-AMGEN-SWECT2014094054

PATIENT
  Age: 80 Year
  Sex: Female

DRUGS (4)
  1. DENOSUMAB [Suspect]
     Active Substance: DENOSUMAB
     Indication: OSTEOPOROSIS POSTMENOPAUSAL
     Dosage: 60 MG, Q6MO
     Route: 058
     Dates: start: 20100302, end: 20140312
  2. WARFARIN [Concomitant]
     Active Substance: WARFARIN
     Dosage: 2.5 MG, QT
     Route: 048
     Dates: start: 20120430
  3. TAMBOCOR [Concomitant]
     Active Substance: FLECAINIDE ACETATE
     Dosage: 50 MG, BID
     Route: 048
     Dates: start: 20140423, end: 20140818
  4. ATENOLOL. [Concomitant]
     Active Substance: ATENOLOL
     Dosage: 12.5 MG, BID
     Route: 048

REACTIONS (1)
  - Sinus node dysfunction [Recovered/Resolved]

NARRATIVE: CASE EVENT DATE: 20140423
